FAERS Safety Report 12565096 (Version 2)
Quarter: 2016Q3

REPORT INFORMATION
  Report Type: Spontaneous
  Country: US (occurrence: US)
  Receive Date: 20160718
  Receipt Date: 20160907
  Transmission Date: 20161109
  Serious: Yes (Hospitalization, Disabling, Other)
  Sender: FDA-Public Use
  Company Number: US-CELGENEUS-USA-2016071569

PATIENT

DRUGS (9)
  1. OTEZLA [Suspect]
     Active Substance: APREMILAST
     Indication: PSORIASIS
     Dosage: 60 MILLIGRAM
     Route: 048
     Dates: start: 20160531, end: 20160708
  2. METHOTREXATE. [Concomitant]
     Active Substance: METHOTREXATE
     Indication: PSORIASIS
     Route: 065
     Dates: start: 2013
  3. LEVOXYL [Concomitant]
     Active Substance: LEVOTHYROXINE SODIUM
     Indication: HYPOTHYROIDISM
     Route: 065
  4. LISINOPRIL. [Concomitant]
     Active Substance: LISINOPRIL
     Indication: HYPERTENSION
     Route: 065
  5. LIPITOR [Concomitant]
     Active Substance: ATORVASTATIN CALCIUM
     Indication: PRODUCT USED FOR UNKNOWN INDICATION
     Route: 065
  6. DICLOFENAC [Concomitant]
     Active Substance: DICLOFENAC
     Indication: ARTHRITIS
     Route: 065
  7. ALLOPURINOL. [Concomitant]
     Active Substance: ALLOPURINOL
     Indication: GOUT
     Route: 065
     Dates: start: 201604
  8. ACTOS [Concomitant]
     Active Substance: PIOGLITAZONE HYDROCHLORIDE
     Indication: DIABETES MELLITUS
     Route: 065
  9. COLCHICINE/PROBENECID [Concomitant]
     Indication: GOUT
     Route: 065
     Dates: start: 20160428

REACTIONS (2)
  - Deep vein thrombosis [Not Recovered/Not Resolved]
  - Leiomyosarcoma metastatic [Not Recovered/Not Resolved]

NARRATIVE: CASE EVENT DATE: 20160630
